FAERS Safety Report 5860069-4 (Version None)
Quarter: 2008Q3

REPORT INFORMATION
  Report Type: 
  Country: None (occurrence: None)
  Receive Date: 20080827
  Receipt Date: 20080818
  Transmission Date: 20090109
  Serious: Yes (Hospitalization)
  Sender: FDA-Public Use
  Company Number: FR-PFIZER INC-2008069355

PATIENT
  Age: 84 Year
  Sex: Female

DRUGS (11)
  1. TAHOR [Suspect]
     Dosage: FREQ:IN THE EVENING
     Route: 048
  2. SOLIAN [Suspect]
     Route: 048
     Dates: start: 20070101, end: 20080619
  3. ATHYMIL [Suspect]
     Route: 048
  4. CALCIUM W/COLECALCIFEROL [Suspect]
     Route: 048
  5. CORTANCYL [Concomitant]
  6. ASPIRIN [Concomitant]
     Route: 048
  7. DIFFU K [Concomitant]
  8. CARVEDILOL [Concomitant]
  9. ALLOPURINOL [Concomitant]
  10. TRINITRINE [Concomitant]
  11. HEXAQUINE [Concomitant]

REACTIONS (3)
  - CONFUSIONAL STATE [None]
  - CONSTIPATION [None]
  - FAECALOMA [None]
